FAERS Safety Report 4633186-4 (Version None)
Quarter: 2005Q2

REPORT INFORMATION
  Report Type: 
  Country: None (occurrence: None)
  Receive Date: 20050408
  Receipt Date: 20050325
  Transmission Date: 20051028
  Serious: Yes (Hospitalization)
  Sender: FDA-Public Use
  Company Number: DSA_26153_2005

PATIENT
  Age: 65 Year
  Sex: Female

DRUGS (8)
  1. TAVOR [Suspect]
     Dosage: 1 TAB PO
     Route: 048
     Dates: start: 20050321
  2. AKINETON [Suspect]
     Dosage: 0.5 TAB
     Dates: start: 20050321
  3. EUTHYROX [Suspect]
     Dosage: 1 TAB PO
     Route: 048
     Dates: start: 20050321
  4. GLIANIMON [Suspect]
     Dosage: 2 TAB
     Dates: start: 20050321
  5. GLUCOPHAGE [Suspect]
     Dosage: 1 TAB PO
     Route: 048
     Dates: start: 20050321
  6. TAXILAN [Suspect]
     Dosage: 0.5 TAB
     Dates: start: 20050321
  7. TRUXAL [Suspect]
     Dosage: 1 TAB PO
     Route: 048
     Dates: start: 20050321
  8. UNAT [Suspect]
     Dosage: 1 TAB IH
     Dates: start: 20050321

REACTIONS (6)
  - ALANINE AMINOTRANSFERASE INCREASED [None]
  - ASPARTATE AMINOTRANSFERASE INCREASED [None]
  - BASE EXCESS INCREASED [None]
  - BLOOD CALCIUM DECREASED [None]
  - GLUCOSE TOLERANCE INCREASED [None]
  - SOMNOLENCE [None]
